FAERS Safety Report 9855590 (Version 19)
Quarter: 2017Q2

REPORT INFORMATION
  Report Type: Report from Study
  Country: CA (occurrence: CA)
  Receive Date: 20140130
  Receipt Date: 20170503
  Transmission Date: 20170830
  Serious: Yes (Other)
  Sender: FDA-Public Use
  Company Number: PHHY2013CA144244

PATIENT
  Age: 40 Year
  Sex: Male

DRUGS (6)
  1. SANDOSTATIN LAR DEPOT [Suspect]
     Active Substance: OCTREOTIDE ACETATE
     Indication: NEUROENDOCRINE CARCINOMA METASTATIC
     Dosage: 30 MG, QMO (EVERY 04 WEEKS)
     Route: 030
     Dates: start: 20131128, end: 20160114
  2. CLINDAMYCIN. [Concomitant]
     Active Substance: CLINDAMYCIN
     Indication: PRODUCT USED FOR UNKNOWN INDICATION
     Dosage: 150 MG, Q8H
     Route: 048
     Dates: start: 2016
  3. SANDOSTATIN LAR DEPOT [Suspect]
     Active Substance: OCTREOTIDE ACETATE
     Dosage: 30 MG, EVERY 3 WEEKS
     Route: 030
     Dates: start: 20160204
  4. AFINITOR [Suspect]
     Active Substance: EVEROLIMUS
     Dosage: 10 MG / 5 MG (ALTERNATING DAYS), QD
     Route: 048
  5. CEPHALEXIN. [Concomitant]
     Active Substance: CEPHALEXIN
     Indication: WOUND INFECTION
     Dosage: 500 MG, QD
     Route: 048
     Dates: start: 20170214
  6. AFINITOR [Suspect]
     Active Substance: EVEROLIMUS
     Indication: NEUROENDOCRINE CARCINOMA METASTATIC
     Dosage: UNK
     Route: 048

REACTIONS (33)
  - Carcinoid crisis [Unknown]
  - Influenza [Recovering/Resolving]
  - Ear infection [Unknown]
  - Feeling abnormal [Unknown]
  - Mood altered [Unknown]
  - Tension [Unknown]
  - Asthenia [Unknown]
  - Eye infection [Recovering/Resolving]
  - Irritability [Unknown]
  - Pruritus [Unknown]
  - Fatigue [Unknown]
  - Vomiting [Unknown]
  - Sinusitis [Recovering/Resolving]
  - Nervousness [Unknown]
  - Inappropriate schedule of drug administration [Unknown]
  - Gastric neoplasm [Unknown]
  - Body temperature decreased [Unknown]
  - Anxiety [Unknown]
  - Injection site pain [Unknown]
  - Diarrhoea [Unknown]
  - Lung neoplasm [Unknown]
  - Full blood count abnormal [Unknown]
  - Pyrexia [Recovering/Resolving]
  - Tooth infection [Unknown]
  - Heart rate decreased [Unknown]
  - Injection site discomfort [Unknown]
  - Lower respiratory tract infection [Recovering/Resolving]
  - Blood pressure diastolic increased [Unknown]
  - Flushing [Unknown]
  - Lymphadenopathy [Unknown]
  - Blood pressure systolic increased [Unknown]
  - Pain [Recovering/Resolving]
  - Rash [Unknown]

NARRATIVE: CASE EVENT DATE: 201405
